FAERS Safety Report 9771755 (Version 1)
Quarter: 2013Q4

REPORT INFORMATION
  Report Type: Report from Study
  Country: US (occurrence: US)
  Receive Date: 20131219
  Receipt Date: 20131219
  Transmission Date: 20140711
  Serious: Yes (Other)
  Sender: FDA-Public Use
  Company Number: US-ROCHE-1317560

PATIENT
  Sex: Male
  Weight: 50.4 kg

DRUGS (1)
  1. NUTROPIN AQ [Suspect]
     Indication: GROWTH HORMONE DEFICIENCY
     Dosage: 20 MG (0.2 MG DOSING)
     Route: 058

REACTIONS (3)
  - Attention deficit/hyperactivity disorder [Unknown]
  - Drug dose omission [Unknown]
  - Contusion [Unknown]
